FAERS Safety Report 21166769 (Version 1)
Quarter: 2022Q3

REPORT INFORMATION
  Report Type: Spontaneous
  Country: FR (occurrence: FR)
  Receive Date: 20220803
  Receipt Date: 20220803
  Transmission Date: 20221027
  Serious: Yes (Other)
  Sender: FDA-Public Use
  Company Number: None

PATIENT
  Age: 68 Year
  Sex: Female
  Weight: 75 kg

DRUGS (1)
  1. LINEZOLID [Suspect]
     Active Substance: LINEZOLID
     Indication: Septic shock
     Dosage: 2 BAGS OF 600MG/300ML PER DAY, LINEZOLIDE KABI 2 MG/ML, SOLUTION FOR INFUSION, ROA-20045000
     Route: 042
     Dates: start: 20220503, end: 20220506

REACTIONS (2)
  - Condition aggravated [Recovered/Resolved]
  - Lactic acidosis [Recovered/Resolved]

NARRATIVE: CASE EVENT DATE: 20220503
